FAERS Safety Report 7402445-4 (Version None)
Quarter: 2011Q2

REPORT INFORMATION
  Report Type: 
  Country: None (occurrence: None)
  Receive Date: 20110408
  Receipt Date: 20110325
  Transmission Date: 20111010
  Serious: No
  Sender: FDA-Public Use
  Company Number: US-JNJFOC-20110401202

PATIENT
  Sex: Male

DRUGS (1)
  1. DURAGESIC [Suspect]
     Indication: PRODUCT USED FOR UNKNOWN INDICATION
     Route: 062

REACTIONS (3)
  - ALCOHOL INTERACTION [None]
  - WRONG TECHNIQUE IN DRUG USAGE PROCESS [None]
  - SHOPLIFTING [None]
